FAERS Safety Report 4340802-3 (Version None)
Quarter: 2004Q2

REPORT INFORMATION
  Report Type: 
  Country: None (occurrence: None)
  Receive Date: 20040419
  Receipt Date: 20030225
  Transmission Date: 20050107
  Serious: No
  Sender: FDA-Public Use
  Company Number: US-GLAXOSMITHKLINE-A0398131A

PATIENT
  Sex: Male

DRUGS (1)
  1. ESKALITH [Suspect]
     Indication: BIPOLAR DISORDER
     Dosage: 450MG TWICE PER DAY
     Route: 048
     Dates: start: 20021201

REACTIONS (1)
  - SOMNOLENCE [None]
